FAERS Safety Report 11659784 (Version 1)
Quarter: 2015Q4

REPORT INFORMATION
  Report Type: Spontaneous
  Country: JP (occurrence: JP)
  Receive Date: 20151026
  Receipt Date: 20151026
  Transmission Date: 20160304
  Serious: Yes (Death, Life-Threatening, Other)
  Sender: FDA-Public Use
  Company Number: JP-ROCHE-1636126

PATIENT
  Age: 44 Year
  Sex: Female
  Weight: 102 kg

DRUGS (7)
  1. AVASTIN [Suspect]
     Active Substance: BEVACIZUMAB
     Indication: BREAST CANCER
     Dosage: TREATMENT LINE: 2ND, COMPLETED TREATMENT CYCLE NUMBER: 1
     Route: 041
     Dates: start: 20150724, end: 20150807
  2. PACLITAXEL. [Concomitant]
     Active Substance: PACLITAXEL
     Indication: BREAST CANCER
     Route: 065
     Dates: start: 20150529, end: 20150710
  3. GLYCYRRHIZA [Concomitant]
     Active Substance: LICORICE
     Indication: PAIN
     Dosage: SINGLE USE
     Route: 048
     Dates: start: 20150529
  4. LOXONIN [Concomitant]
     Active Substance: LOXOPROFEN SODIUM
     Indication: PAIN
     Dosage: SINGLE USE
     Route: 048
     Dates: start: 20150529
  5. PACLITAXEL. [Concomitant]
     Active Substance: PACLITAXEL
     Route: 041
     Dates: start: 20150724
  6. RESTAMIN [Concomitant]
     Active Substance: DIPHENHYDRAMINE
     Indication: PROPHYLAXIS
     Route: 048
     Dates: start: 20150529
  7. LYRICA [Concomitant]
     Active Substance: PREGABALIN
     Indication: PROPHYLAXIS
     Route: 048
     Dates: start: 20150529, end: 20150816

REACTIONS (6)
  - Shock haemorrhagic [Recovered/Resolved with Sequelae]
  - Sepsis [Fatal]
  - Peripheral ischaemia [Unknown]
  - Extremity necrosis [Unknown]
  - Acute respiratory distress syndrome [Fatal]
  - Arterial haemorrhage [Recovered/Resolved with Sequelae]

NARRATIVE: CASE EVENT DATE: 20150817
